FAERS Safety Report 5340706-3 (Version None)
Quarter: 2007Q2

REPORT INFORMATION
  Report Type: 
  Country: None (occurrence: None)
  Receive Date: 20070405
  Receipt Date: 20061129
  Transmission Date: 20071010
  Serious: No
  Sender: FDA-Public Use
  Company Number: US200612000629

PATIENT
  Age: 57 Year
  Sex: Male

DRUGS (7)
  1. CYMBALTA [Suspect]
     Dosage: 30 MG
     Dates: end: 20061117
  2. COZAAR [Concomitant]
  3. DIGOXIN [Concomitant]
  4. CELEBREX [Concomitant]
  5. PREDNISONE TAB [Concomitant]
  6. METHOTREXAT /GFR/ (METHOTREXATE) [Concomitant]
  7. ATENOLOL [Concomitant]

REACTIONS (2)
  - DRUG INTERACTION POTENTIATION [None]
  - RECTAL HAEMORRHAGE [None]
